FAERS Safety Report 21111510 (Version 14)
Quarter: 2023Q4

REPORT INFORMATION
  Report Type: Other
  Country: CA (occurrence: None)
  Receive Date: 20220721
  Receipt Date: 20231227
  Transmission Date: 20240110
  Serious: No
  Sender: FDA-Public Use
  Company Number: CA-ROCHE-3143903

PATIENT
  Age: 44 Year
  Sex: Female

DRUGS (3)
  1. OCREVUS [Suspect]
     Active Substance: OCRELIZUMAB
     Indication: Relapsing-remitting multiple sclerosis
     Dosage: 300 MG AT DAY 0 AND 14, THEN 600 MG EVERY 6 MONTH
     Route: 042
     Dates: start: 20210401
  2. TWINRIX [Suspect]
     Active Substance: HEPATITIS A VIRUS STRAIN HM175 ANTIGEN (FORMALDEHYDE INACTIVATED)\HEPATITIS B VIRUS SUBTYPE ADW2 HBS
     Indication: Product used for unknown indication
     Route: 065
  3. LEMTRADA [Concomitant]
     Active Substance: ALEMTUZUMAB

REACTIONS (19)
  - COVID-19 [Recovering/Resolving]
  - Fatigue [Recovering/Resolving]
  - Ear pruritus [Recovered/Resolved]
  - Headache [Recovered/Resolved]
  - Feeling abnormal [Recovering/Resolving]
  - Gait disturbance [Recovering/Resolving]
  - Fall [Unknown]
  - Chest discomfort [Not Recovered/Not Resolved]
  - Somnolence [Not Recovered/Not Resolved]
  - Anxiety [Recovering/Resolving]
  - Depression [Recovering/Resolving]
  - Middle ear effusion [Recovering/Resolving]
  - Pain in extremity [Unknown]
  - Pyrexia [Unknown]
  - Nasopharyngitis [Unknown]
  - Infusion related reaction [Unknown]
  - Off label use [Unknown]
  - Immunosuppression [Unknown]
  - Feeling abnormal [Unknown]

NARRATIVE: CASE EVENT DATE: 20220717
